FAERS Safety Report 18484752 (Version 1)
Quarter: 2020Q4

REPORT INFORMATION
  Report Type: Spontaneous
  Country: GB (occurrence: JP)
  Receive Date: 20201110
  Receipt Date: 20201110
  Transmission Date: 20210114
  Serious: Yes (Other)
  Sender: FDA-Public Use
  Company Number: JP-ASTELLAS-2020US039582

PATIENT
  Age: 85 Year
  Sex: Female

DRUGS (1)
  1. ERLOTINIB [Suspect]
     Active Substance: ERLOTINIB
     Indication: LUNG NEOPLASM MALIGNANT
     Dosage: 100 MG, UNKNOWN FREQ. (DOSAGE WAS UNCERTAIN)
     Route: 048

REACTIONS (1)
  - Femoral neck fracture [Unknown]
